APPROVED DRUG PRODUCT: TOLCAPONE
Active Ingredient: TOLCAPONE
Strength: 100MG
Dosage Form/Route: TABLET;ORAL
Application: A207729 | Product #001
Applicant: ALVOGEN INC
Approved: Jul 29, 2020 | RLD: No | RS: No | Type: DISCN